FAERS Safety Report 12592883 (Version 1)
Quarter: 2016Q3

REPORT INFORMATION
  Report Type: Spontaneous
  Country: CN (occurrence: CN)
  Receive Date: 20160726
  Receipt Date: 20160726
  Transmission Date: 20161109
  Serious: Yes (Hospitalization)
  Sender: FDA-Public Use
  Company Number: PHHY2016CN099006

PATIENT
  Age: 30 Year
  Sex: Male

DRUGS (1)
  1. TELBIVUDINE [Suspect]
     Active Substance: TELBIVUDINE
     Indication: HEPATITIS B
     Dosage: 600 MG, QD
     Route: 065
     Dates: start: 20110720

REACTIONS (19)
  - Chest pain [Recovering/Resolving]
  - Dyspnoea [Recovering/Resolving]
  - Muscular weakness [Recovering/Resolving]
  - Pain in extremity [Unknown]
  - Decreased appetite [Unknown]
  - Lethargy [Unknown]
  - Chest discomfort [Unknown]
  - Hypoxia [Unknown]
  - Lactic acidosis [Unknown]
  - Malaise [Unknown]
  - Multiple organ dysfunction syndrome [Unknown]
  - Rhabdomyolysis [Unknown]
  - Myalgia [Unknown]
  - Nausea [Unknown]
  - Peripheral coldness [Unknown]
  - Cyanosis [Unknown]
  - Palpitations [Unknown]
  - Vomiting [Unknown]
  - Hypotension [Unknown]
